FAERS Safety Report 19728145 (Version 2)
Quarter: 2021Q3

REPORT INFORMATION
  Report Type: Spontaneous
  Country: CN (occurrence: CN)
  Receive Date: 20210820
  Receipt Date: 20210823
  Transmission Date: 20211014
  Serious: Yes (Other)
  Sender: FDA-Public Use
  Company Number: CN-IPSEN BIOPHARMACEUTICALS, INC.-2021-20272

PATIENT

DRUGS (1)
  1. SOMATULINE AUTOGEL [Suspect]
     Active Substance: LANREOTIDE ACETATE
     Indication: ACROMEGALY
     Route: 058
     Dates: start: 202104

REACTIONS (2)
  - Transaminases increased [Unknown]
  - Liver injury [Unknown]

NARRATIVE: CASE EVENT DATE: 2021
